FAERS Safety Report 7966391-X (Version None)
Quarter: 2011Q4

REPORT INFORMATION
  Report Type: 
  Country: None (occurrence: None)
  Receive Date: 20111208
  Receipt Date: 20111206
  Transmission Date: 20120403
  Serious: Yes (Hospitalization)
  Sender: FDA-Public Use
  Company Number: FR-PFIZER INC-2011114743

PATIENT
  Age: 61 Year
  Sex: Male

DRUGS (12)
  1. ATORVASTATIN CALCIUM [Suspect]
     Dosage: 20 MG, 1X/DAY
  2. LASIX [Suspect]
     Dosage: 40 MG, 1X/DAY
     Route: 048
     Dates: start: 20110301, end: 20110331
  3. PLAVIX [Suspect]
     Dosage: 75 MG, 1X/DAY
  4. VITAMIN B COMPLEX TAB [Suspect]
     Dosage: UNK
  5. MICARDIS HCT [Suspect]
     Dosage: 1 DF, 1X/DAY
  6. INSULIN [Suspect]
     Dosage: UNK
  7. ALLOPURINOL [Suspect]
     Dosage: 300 MG, 1X/DAY
  8. CORGARD [Suspect]
     Indication: HYPERTENSION
     Dosage: 80 MG, 2X/DAY
     Route: 048
     Dates: start: 20110312
  9. ENALAPRIL MALEATE [Suspect]
     Dosage: 1 DF, 1X/DAY
  10. ADANCOR [Suspect]
     Dosage: 40 MG, 1X/DAY
  11. LASIX [Suspect]
     Indication: HYPERTENSION
     Dosage: 80 MG, 1X/DAY
     Route: 048
     Dates: start: 20110312, end: 20110324
  12. REPAGLINIDE [Suspect]
     Dosage: 3 MG, 1X/DAY

REACTIONS (7)
  - RALES [None]
  - INJECTION SITE HAEMORRHAGE [None]
  - LEUKOPENIA [None]
  - HAEMATOMA [None]
  - DYSPNOEA [None]
  - THROMBOCYTOPENIA [None]
  - OEDEMA [None]
